FAERS Safety Report 4977623-4 (Version None)
Quarter: 2006Q2

REPORT INFORMATION
  Report Type: 
  Country: None (occurrence: None)
  Receive Date: 20060420
  Receipt Date: 20050418
  Transmission Date: 20061013
  Serious: No
  Sender: FDA-Public Use
  Company Number: US-GLAXOSMITHKLINE-A0554497A

PATIENT
  Age: 51 Year
  Sex: Female

DRUGS (3)
  1. ESKALITH [Suspect]
     Dosage: 900MG PER DAY
     Route: 048
  2. WELLBUTRIN [Suspect]
     Indication: DRUG USE FOR UNKNOWN INDICATION
     Dosage: 300MG UNKNOWN
     Route: 048
  3. CLONOPIN [Concomitant]
     Route: 065

REACTIONS (1)
  - WEIGHT INCREASED [None]
